FAERS Safety Report 15172326 (Version 1)
Quarter: 2018Q3

REPORT INFORMATION
  Report Type: Spontaneous
  Country: KR (occurrence: KR)
  Receive Date: 20180720
  Receipt Date: 20180720
  Transmission Date: 20181010
  Serious: Yes (Hospitalization, Congenital Anomaly, Other)
  Sender: FDA-Public Use
  Company Number: KR-LUNDBECK-DKLU2046919

PATIENT
  Age: 9 Month
  Sex: Female

DRUGS (3)
  1. ACTH [Suspect]
     Active Substance: CORTICOTROPIN
     Indication: PRODUCT USED FOR UNKNOWN INDICATION
     Route: 048
     Dates: start: 2017
  2. VIGABATRIN (FOR ORAL SOLUTION) [Suspect]
     Active Substance: VIGABATRIN
     Indication: INFANTILE SPASMS
  3. VIGABATRIN (FOR ORAL SOLUTION) [Suspect]
     Active Substance: VIGABATRIN
     Indication: EPILEPSY
     Route: 048
     Dates: start: 20171017

REACTIONS (14)
  - Head titubation [Recovering/Resolving]
  - Hot flush [Recovering/Resolving]
  - Strabismus [Recovering/Resolving]
  - Nuclear magnetic resonance imaging brain abnormal [Recovering/Resolving]
  - Hypertonia [Recovering/Resolving]
  - Dyskinesia [Recovering/Resolving]
  - Visual impairment [Recovering/Resolving]
  - Hyperhidrosis [Recovering/Resolving]
  - Infantile spasms [Recovering/Resolving]
  - Bradycardia [Recovering/Resolving]
  - Facial spasm [Recovering/Resolving]
  - Feeding disorder [Recovering/Resolving]
  - Nuclear magnetic resonance imaging abnormal [Recovering/Resolving]
  - Ocular dysmetria [Recovering/Resolving]
